FAERS Safety Report 9037799 (Version 1)
Quarter: 2013Q1

REPORT INFORMATION
  Report Type: Spontaneous
  Country: IL (occurrence: IL)
  Receive Date: 20130129
  Receipt Date: 20130129
  Transmission Date: 20140127
  Serious: Yes (Hospitalization)
  Sender: FDA-Public Use
  Company Number: IL-AMGEN-ISRSP2013006262

PATIENT
  Sex: Male

DRUGS (2)
  1. XGEVA [Suspect]
     Indication: PRODUCT USED FOR UNKNOWN INDICATION
     Dosage: UNK
  2. ANTIBIOTICS [Concomitant]

REACTIONS (4)
  - Clostridial infection [Unknown]
  - Diarrhoea [Unknown]
  - Pyrexia [Unknown]
  - Gastrointestinal inflammation [Unknown]
